FAERS Safety Report 8605638 (Version 8)
Quarter: 2013Q1

REPORT INFORMATION
  Report Type: Spontaneous
  Country: US (occurrence: US)
  Receive Date: 20120608
  Receipt Date: 20130311
  Transmission Date: 20140127
  Serious: Yes (Other)
  Sender: FDA-Public Use
  Company Number: US-ASTRAZENECA-2012SE36349

PATIENT
  Age: 70 Year
  Sex: Female

DRUGS (48)
  1. NEXIUM [Suspect]
     Indication: GASTROOESOPHAGEAL REFLUX DISEASE
     Route: 048
  2. AMLODIPINE BESYLATE [Concomitant]
     Route: 048
     Dates: start: 20120806
  3. AMLODIPINE BESYLATE [Concomitant]
     Route: 048
     Dates: start: 20120705
  4. AMLODIPINE BESYLATE [Concomitant]
     Route: 048
     Dates: start: 20120609
  5. AMLODIPINE BESYLATE [Concomitant]
     Route: 048
     Dates: start: 20120517
  6. AMLODIPINE BESYLATE [Concomitant]
     Route: 048
     Dates: start: 20120409
  7. AMLODIPINE BESYLATE [Concomitant]
     Route: 048
     Dates: start: 20120302
  8. AMLODIPINE BESYLATE [Concomitant]
     Route: 048
     Dates: start: 20120206
  9. BUMETANIDE [Concomitant]
     Route: 048
     Dates: start: 20120806
  10. BUMETANIDE [Concomitant]
     Route: 048
     Dates: start: 20120705
  11. BUMETANIDE [Concomitant]
     Route: 048
     Dates: start: 20120517
  12. BUMETANIDE [Concomitant]
     Route: 048
     Dates: start: 20120409
  13. BUMETANIDE [Concomitant]
     Route: 048
     Dates: start: 20120309
  14. BUMETANIDE [Concomitant]
     Route: 048
     Dates: start: 20120215
  15. BUMETANIDE [Concomitant]
     Route: 048
     Dates: start: 20120123
  16. OFLOXACIN [Concomitant]
     Dosage: INSTILL 4 DROPS INTO LEFT EAR TWICE A DAY FOR 10 DAYS
     Dates: start: 20120707
  17. METOPROLOL TARTRATE [Concomitant]
     Route: 048
     Dates: start: 20120705
  18. METOPROLOL TARTRATE [Concomitant]
     Route: 048
     Dates: start: 20120517
  19. METOPROLOL TARTRATE [Concomitant]
     Route: 048
     Dates: start: 20120302
  20. METOPROLOL TARTRATE [Concomitant]
     Route: 048
     Dates: start: 20120206
  21. RA LORATADINE [Concomitant]
     Route: 048
     Dates: start: 20120806
  22. RA LORATADINE [Concomitant]
     Route: 048
     Dates: start: 20120705
  23. RA LORATADINE [Concomitant]
     Route: 048
     Dates: start: 20120609
  24. RA LORATADINE [Concomitant]
     Route: 048
     Dates: start: 20120309
  25. POLYETHYLENE GLYCOL [Concomitant]
     Dosage: 3350 POWD AS REQUIRED
     Dates: start: 20120513
  26. SULFAMETHOXAZOLE [Concomitant]
     Dosage: 1 TABLET TWICE A DAY FOR 10 DAYS
     Route: 048
     Dates: start: 20120430
  27. SULFAMETHOXAZOLE [Concomitant]
     Dosage: 1 TABLET TWICE A DAY
     Route: 048
     Dates: start: 20120421
  28. SULFAMETHOXAZOLE [Concomitant]
     Dosage: 1 TABLET TWICE A DAY
     Route: 048
     Dates: start: 20120406
  29. SULFAMETHOXAZOLE [Concomitant]
     Dosage: 1 TABLET TWICE A DAY
     Route: 048
     Dates: start: 20120329
  30. SULFAMETHOXAZOLE [Concomitant]
     Dosage: 1 TABLET TWICE A DAY FOR 10 DAYS
     Route: 048
     Dates: start: 20120319
  31. DOXYCYCLINE HYCLATE [Concomitant]
     Dosage: 1 CAPSULE TWICE A DAY FOR 10 DAYS
     Route: 048
     Dates: start: 20120319
  32. NYSTATIN- TRIAMCINOLONE [Concomitant]
     Dosage: APPLY TO AFFECTED AREA TWO TIMES A DAY
     Dates: start: 20120305
  33. NEOMYCIN-POLYMYXIN [Concomitant]
     Dosage: AS REQUIRED
     Dates: start: 20120302
  34. CIPROFLOXACIN HCL [Concomitant]
     Dosage: 1 TABLET TWICE A DAYS FOR 3 DAYS
     Dates: start: 20120301
  35. AZITHROMYCIN [Concomitant]
  36. SODIUM CHLORIDE [Concomitant]
  37. RA COL-RITE [Concomitant]
     Route: 048
     Dates: start: 20120806
  38. RA COL-RITE [Concomitant]
     Route: 048
     Dates: start: 20120517
  39. RA COL-RITE [Concomitant]
     Route: 048
     Dates: start: 20120309
  40. RA COL-RITE [Concomitant]
     Route: 048
     Dates: start: 20120302
  41. RA COL-RITE [Concomitant]
     Route: 048
     Dates: start: 20120206
  42. ANTIPYRINE-BENZOCAINE [Concomitant]
     Dates: start: 20120701
  43. CLINDAMYCIN HCL [Concomitant]
  44. HYDROCHLOROTHIAZIDE [Concomitant]
     Route: 048
     Dates: start: 20110201
  45. MELOXICAM [Concomitant]
  46. RA P-COL RITE [Concomitant]
     Route: 048
     Dates: start: 20110912
  47. RA P-COL RITE [Concomitant]
     Route: 048
     Dates: start: 20120302
  48. RA P-COL RITE [Concomitant]
     Route: 048
     Dates: start: 20120123

REACTIONS (13)
  - Sepsis [Unknown]
  - Hypertension [Unknown]
  - Gastrooesophageal reflux disease [Unknown]
  - Oesophagitis [Unknown]
  - Arthritis [Unknown]
  - Gait disturbance [Unknown]
  - Pharyngeal disorder [Unknown]
  - Pharyngeal inflammation [Unknown]
  - Dyspepsia [Unknown]
  - Oedema peripheral [Unknown]
  - Hypersensitivity [Unknown]
  - Intentional drug misuse [Unknown]
  - Drug dose omission [Unknown]
